FAERS Safety Report 19290328 (Version 2)
Quarter: 2021Q3

REPORT INFORMATION
  Report Type: Spontaneous
  Country: JP (occurrence: JP)
  Receive Date: 20210521
  Receipt Date: 20210705
  Transmission Date: 20211014
  Serious: Yes (Death, Other)
  Sender: FDA-Public Use
  Company Number: JP-009507513-2104JPN001601J

PATIENT
  Age: 79 Year
  Sex: Male

DRUGS (3)
  1. ROCURONIUM BROMIDE. [Concomitant]
     Active Substance: ROCURONIUM BROMIDE
     Dosage: UNK
     Route: 051
  2. BRIDION [Suspect]
     Active Substance: SUGAMMADEX
     Indication: NEUROMUSCULAR BLOCKADE REVERSAL
     Dosage: 2 MILLIGRAM/KILOGRAM, ONCE
     Route: 042
  3. BRIDION [Suspect]
     Active Substance: SUGAMMADEX
     Dosage: 2 MILLIGRAM/KILOGRAM
     Route: 042

REACTIONS (12)
  - Hepatic enzyme increased [Unknown]
  - Blood creatine phosphokinase increased [Unknown]
  - Dyspnoea [Recovered/Resolved]
  - Seizure [Unknown]
  - Ventricular tachycardia [Unknown]
  - Glossoptosis [Unknown]
  - Recurrence of neuromuscular blockade [Recovered/Resolved]
  - Blood pressure decreased [Unknown]
  - Arrhythmia [Fatal]
  - Atrial fibrillation [Unknown]
  - Hyperthermia malignant [Unknown]
  - SARS-CoV-2 test positive [Unknown]
